FAERS Safety Report 5669708-4 (Version None)
Quarter: 2008Q1

REPORT INFORMATION
  Report Type: 
  Country: None (occurrence: None)
  Receive Date: 20080317
  Receipt Date: 20080307
  Transmission Date: 20080703
  Serious: Yes (Other)
  Sender: FDA-Public Use
  Company Number: PHBS2008US03103

PATIENT
  Age: 20 Year
  Sex: Female

DRUGS (6)
  1. METHYLPHENIDATE HCL [Suspect]
     Indication: ATTENTION DEFICIT/HYPERACTIVITY DISORDER
  2. DEXTROAMPHETAMINE [Suspect]
     Dosage: 40 MG/DAY
  3. LORATADINE [Concomitant]
  4. IBUPROFEN [Concomitant]
     Indication: ARTHRALGIA
     Dosage: 600 MG/DAY
  5. CONTRACEPTIVES NOS [Concomitant]
     Route: 048
  6. NAPROXEN [Concomitant]
     Dosage: 375 MG, BID

REACTIONS (5)
  - CALCINOSIS [None]
  - LABORATORY TEST ABNORMAL [None]
  - LIVEDO RETICULARIS [None]
  - SKIN DISORDER [None]
  - SKIN ULCER [None]
